FAERS Safety Report 8269973-3 (Version None)
Quarter: 2012Q2

REPORT INFORMATION
  Report Type: 
  Country: None (occurrence: None)
  Receive Date: 20120410
  Receipt Date: 20120330
  Transmission Date: 20120825
  Serious: Yes (Other)
  Sender: FDA-Public Use
  Company Number: FR-JNJFOC-20120301812

PATIENT
  Sex: Male
  Weight: 48 kg

DRUGS (3)
  1. VITAMIN D [Concomitant]
     Indication: PRODUCT USED FOR UNKNOWN INDICATION
     Dates: end: 20120218
  2. ZYTIGA [Suspect]
     Indication: PROSTATE CANCER
     Route: 048
     Dates: start: 20120302
  3. ZYTIGA [Suspect]
     Route: 048
     Dates: start: 20120216, end: 20120229

REACTIONS (4)
  - PANCYTOPENIA [None]
  - NEUTROPENIA [None]
  - FATIGUE [None]
  - THROMBOCYTOPENIA [None]
